FAERS Safety Report 6928778-3 (Version None)
Quarter: 2010Q3

REPORT INFORMATION
  Report Type: 
  Country: None (occurrence: None)
  Receive Date: 20100806
  Receipt Date: 20090709
  Transmission Date: 20110219
  Serious: No
  Sender: FDA-Public Use
  Company Number: 2009-00328

PATIENT
  Age: 58 Year
  Sex: Female
  Weight: 61.2356 kg

DRUGS (11)
  1. ZICAM ALLERGY RELIEF NASAL GEL [Suspect]
     Dosage: QD, 2 MONTHS
     Dates: start: 20090301, end: 20090616
  2. THYROID TAB [Concomitant]
  3. MULTI-VITAMIN [Concomitant]
  4. ASCORBIC ACID [Concomitant]
  5. GARLIC [Concomitant]
  6. ASPIRIN [Concomitant]
  7. GLUCOSAMINE [Concomitant]
  8. CHONDROITIN [Concomitant]
  9. ACIDOPHILUS [Concomitant]
  10. FISH OIL [Concomitant]
  11. AMOXICILLIN [Concomitant]

REACTIONS (2)
  - AGEUSIA [None]
  - ANOSMIA [None]
